FAERS Safety Report 5744214-7 (Version None)
Quarter: 2008Q2

REPORT INFORMATION
  Report Type: 
  Country: None (occurrence: None)
  Receive Date: 20080520
  Receipt Date: 20080519
  Transmission Date: 20081010
  Serious: Yes (Other)
  Sender: FDA-Public Use
  Company Number: FR-RB-001063-08

PATIENT
  Age: 48 Year
  Sex: Male

DRUGS (3)
  1. SUBUTEX [Suspect]
     Dosage: DOSE UNKNOWN
     Route: 042
     Dates: start: 20070901
  2. SUBUTEX [Suspect]
     Dosage: DOSE UNKNOWN
     Route: 042
  3. ASPEGIC 1000 [Suspect]
     Route: 048
     Dates: start: 20070901

REACTIONS (2)
  - HEPATITIS [None]
  - SUBSTANCE ABUSE [None]
